FAERS Safety Report 7046287-0 (Version None)
Quarter: 2010Q4

REPORT INFORMATION
  Report Type: 
  Country: None (occurrence: None)
  Receive Date: 20101014
  Receipt Date: 20101004
  Transmission Date: 20110411
  Serious: Yes (Hospitalization)
  Sender: FDA-Public Use
  Company Number: B0673561A

PATIENT
  Sex: Female
  Weight: 71 kg

DRUGS (1)
  1. ARIXTRA [Suspect]
     Indication: THROMBOSIS PROPHYLAXIS
     Route: 058
     Dates: start: 20091211, end: 20091223

REACTIONS (5)
  - ANAEMIA [None]
  - BREAST HAEMATOMA [None]
  - MUSCLE HAEMORRHAGE [None]
  - OFF LABEL USE [None]
  - PAIN IN EXTREMITY [None]
